FAERS Safety Report 5537337-9 (Version None)
Quarter: 2007Q4

REPORT INFORMATION
  Report Type: 
  Country: None (occurrence: None)
  Receive Date: 20071207
  Receipt Date: 20071206
  Transmission Date: 20080405
  Serious: Yes (Other)
  Sender: FDA-Public Use
  Company Number: A0690400A

PATIENT
  Sex: Female

DRUGS (2)
  1. NICORETTE [Suspect]
     Indication: TOBACCO ABUSE
     Route: 002
  2. NICORETTE (MINT) [Suspect]
     Indication: TOBACCO ABUSE
     Route: 002

REACTIONS (5)
  - COUGH [None]
  - DEPENDENCE [None]
  - DRUG ADMINISTRATION ERROR [None]
  - INTENTIONAL DRUG MISUSE [None]
  - NAUSEA [None]
